FAERS Safety Report 14176597 (Version 1)
Quarter: 2017Q4

REPORT INFORMATION
  Report Type: Spontaneous
  Country: US (occurrence: US)
  Receive Date: 20171109
  Receipt Date: 20171109
  Transmission Date: 20180321
  Serious: Yes (Disabling)
  Sender: FDA-Public Use
  Company Number: None

PATIENT
  Age: 39 Year
  Sex: Female
  Weight: 54.45 kg

DRUGS (3)
  1. CLODERM [Suspect]
     Active Substance: CLOCORTOLONE PIVALATE
     Indication: HYPERSENSITIVITY
     Dosage: DAILY, TOPICAL, 1 PEA SIZED OR LESS?
     Route: 061
     Dates: start: 20120202, end: 20120930
  2. BIRTH CONTROL PILLS [Concomitant]
     Active Substance: UNSPECIFIED INGREDIENT
  3. MULTIVITAMIN [Concomitant]
     Active Substance: VITAMINS

REACTIONS (13)
  - Eyelid oedema [None]
  - Neuralgia [None]
  - Skin exfoliation [None]
  - Staphylococcal infection [None]
  - Thyroid disorder [None]
  - Crying [None]
  - Pruritus [None]
  - Erythema [None]
  - Night sweats [None]
  - Rash [None]
  - Skin burning sensation [None]
  - Inflammation [None]
  - Lip swelling [None]

NARRATIVE: CASE EVENT DATE: 20120930
